FAERS Safety Report 7315707-6 (Version None)
Quarter: 2011Q1

REPORT INFORMATION
  Report Type: 
  Country: None (occurrence: None)
  Receive Date: 20110225
  Receipt Date: 20100928
  Transmission Date: 20110831
  Serious: Yes (Other)
  Sender: FDA-Public Use
  Company Number: US-BAYER-200943307NA

PATIENT
  Sex: Female
  Weight: 86.18 kg

DRUGS (10)
  1. NSAID'S [Concomitant]
  2. ADVAIR DISKUS 100/50 [Concomitant]
     Indication: ASTHMA
     Dosage: UNK
     Dates: start: 20080101, end: 20090101
  3. OCELLA [Suspect]
     Indication: CONTRACEPTION
     Dosage: UNK
     Dates: start: 20080901, end: 20090911
  4. ALBUTEROL [Concomitant]
     Indication: ASTHMA
     Dosage: UNK
     Dates: start: 20080101, end: 20090101
  5. YASMIN [Suspect]
     Indication: CONTRACEPTION
     Dosage: UNK
     Dates: start: 20051001, end: 20080701
  6. YASMIN [Suspect]
     Indication: PREMENSTRUAL SYNDROME
  7. YAZ [Suspect]
     Indication: CONTRACEPTION
     Dosage: UNK
  8. TOPROL-XL [Concomitant]
     Indication: HEART RATE INCREASED
     Dosage: UNK
     Dates: start: 20050101
  9. YAZ [Suspect]
     Indication: PREMENSTRUAL SYNDROME
  10. OCELLA [Suspect]
     Indication: PREMENSTRUAL SYNDROME

REACTIONS (4)
  - SWELLING [None]
  - HYPOAESTHESIA [None]
  - DEEP VEIN THROMBOSIS [None]
  - PAIN [None]
